FAERS Safety Report 7707484-1 (Version None)
Quarter: 2011Q3

REPORT INFORMATION
  Report Type: 
  Country: None (occurrence: None)
  Receive Date: 20110824
  Receipt Date: 20110810
  Transmission Date: 20111222
  Serious: Yes (Hospitalization)
  Sender: FDA-Public Use
  Company Number: US-ENDO PHARMACEUTICALS INC.-OPIR20110047

PATIENT
  Sex: Female

DRUGS (1)
  1. OPANA [Suspect]
     Dosage: 40-60 MG
     Route: 048

REACTIONS (1)
  - RECTAL PROLAPSE [None]
